FAERS Safety Report 7004237-7 (Version None)
Quarter: 2010Q3

REPORT INFORMATION
  Report Type: 
  Country: None (occurrence: None)
  Receive Date: 20100920
  Receipt Date: 20100211
  Transmission Date: 20110219
  Serious: No
  Sender: FDA-Public Use
  Company Number: US-WYE-H13621310

PATIENT
  Sex: Female
  Weight: 81.27 kg

DRUGS (2)
  1. PRISTIQ [Suspect]
     Indication: DEPRESSION
     Route: 048
     Dates: start: 20090901, end: 20091201
  2. LISINOPRIL [Concomitant]

REACTIONS (3)
  - NAUSEA [None]
  - RASH ERYTHEMATOUS [None]
  - RASH PRURITIC [None]
